FAERS Safety Report 9060610 (Version 1)
Quarter: 2013Q1

REPORT INFORMATION
  Report Type: Report from Study
  Country: US (occurrence: US)
  Receive Date: 20130212
  Receipt Date: 20130212
  Transmission Date: 20140127
  Serious: Yes (Hospitalization)
  Sender: FDA-Public Use
  Company Number: US-US-EMD SERONO, INC.-7190223

PATIENT
  Age: 51 None
  Sex: Male

DRUGS (3)
  1. REBIF [Suspect]
     Indication: MULTIPLE SCLEROSIS
     Route: 058
     Dates: start: 20040428
  2. COLESTIPOL [Concomitant]
     Indication: BLOOD CHOLESTEROL INCREASED
  3. BACLOFEN [Concomitant]
     Indication: MUSCLE SPASMS

REACTIONS (2)
  - Influenza [Recovered/Resolved]
  - Red blood cell count decreased [Recovered/Resolved]
